FAERS Safety Report 7825986-4 (Version None)
Quarter: 2011Q4

REPORT INFORMATION
  Report Type: 
  Country: None (occurrence: None)
  Receive Date: 20111019
  Receipt Date: 20111014
  Transmission Date: 20120403
  Serious: Yes (Hospitalization)
  Sender: FDA-Public Use
  Company Number: FR-ROCHE-1004956

PATIENT
  Sex: Male

DRUGS (3)
  1. IMMUNE GLOBULIN NOS [Concomitant]
  2. MABTHERA [Suspect]
     Indication: B-CELL LYMPHOMA
     Dosage: FIRST LINE OF TREATMENT
     Route: 042
  3. IMMUNE GLOBULIN NOS [Concomitant]

REACTIONS (3)
  - HYPERTHERMIA [None]
  - LUNG DISORDER [None]
  - COUGH [None]
